FAERS Safety Report 4472012-3 (Version None)
Quarter: 2004Q4

REPORT INFORMATION
  Report Type: 
  Country: None (occurrence: None)
  Receive Date: 20041007
  Receipt Date: 20040922
  Transmission Date: 20050328
  Serious: Yes (Hospitalization)
  Sender: FDA-Public Use
  Company Number: 239587

PATIENT
  Age: 55 Year
  Sex: Female

DRUGS (1)
  1. VAGIFEM [Suspect]
     Indication: HORMONE REPLACEMENT THERAPY

REACTIONS (2)
  - HYPERPLASIA [None]
  - UTERINE CANCER [None]
